FAERS Safety Report 6675361-3 (Version None)
Quarter: 2010Q2

REPORT INFORMATION
  Report Type: 
  Country: None (occurrence: None)
  Receive Date: 20100409
  Receipt Date: 20100308
  Transmission Date: 20101027
  Serious: No
  Sender: FDA-Public Use
  Company Number: A0846424A

PATIENT
  Age: 49 Year
  Sex: Female

DRUGS (2)
  1. TYKERB [Suspect]
     Indication: DRUG USE FOR UNKNOWN INDICATION
     Dosage: 1250MG PER DAY
     Route: 065
     Dates: start: 20100206
  2. ANTIBIOTIC [Suspect]

REACTIONS (5)
  - DRY SKIN [None]
  - SKIN EXFOLIATION [None]
  - URINARY TRACT INFECTION [None]
  - VISION BLURRED [None]
  - VISUAL IMPAIRMENT [None]
